FAERS Safety Report 21419420 (Version 1)
Quarter: 2022Q4

REPORT INFORMATION
  Report Type: Spontaneous
  Country: SE (occurrence: SE)
  Receive Date: 20221006
  Receipt Date: 20221006
  Transmission Date: 20230113
  Serious: Yes (Hospitalization, Other)
  Sender: FDA-Public Use
  Company Number: None

PATIENT
  Age: 10 Year
  Sex: Female
  Weight: 30 kg

DRUGS (9)
  1. ARTICAINE\EPINEPHRINE [Suspect]
     Active Substance: ARTICAINE\EPINEPHRINE
     Indication: Dental local anaesthesia
     Dosage: 1,7ML?ORAL INJEKTION. 40 MG/ML + 10 MIKROGRAM/ML.
     Route: 004
     Dates: start: 20220825, end: 20220825
  2. ALBUTEROL SULFATE [Concomitant]
     Active Substance: ALBUTEROL SULFATE
     Indication: Product used for unknown indication
     Dosage: 0,1 MG/DOS 1-2 PUFFAR VID BEHOV.
     Route: 055
  3. LOMUDAL [Concomitant]
     Indication: Product used for unknown indication
     Dosage: 40 MG/ML 1-2 DROPPAR I VARJE ?GA TV? G?NGER DAGLIGEN VID BEHOV.
  4. Miniderm [Concomitant]
     Indication: Product used for unknown indication
     Dosage: 20 % 1X2
     Route: 003
  5. LOCOBASE LPL [Concomitant]
     Indication: Product used for unknown indication
     Dosage: 200 MG/G+45 MG/G DOSERING ENLIGT ANVISNING.
     Route: 003
  6. EBASTINE [Concomitant]
     Active Substance: EBASTINE
     Indication: Product used for unknown indication
     Dosage: 2,5 MG 1X1
     Route: 048
  7. Ficortril [Concomitant]
     Indication: Product used for unknown indication
     Dosage: 0,5 % 1 DOS 2 G?NGER DAGLIGEN ENLIGT ORDINATION.
     Route: 003
  8. FLUTICASONE PROPIONATE [Concomitant]
     Active Substance: FLUTICASONE PROPIONATE
     Indication: Product used for unknown indication
     Dosage: 125 MIKROGRAM/DOS 2 PUFFAR 2 G?NGER DAGLIGEN.
  9. EMOVAT [Concomitant]
     Indication: Product used for unknown indication
     Dosage: 0,05 % ENLIGT ANVISNING
     Route: 003

REACTIONS (6)
  - Cough [Recovered/Resolved]
  - Pharyngeal swelling [Recovering/Resolving]
  - Anaphylactic reaction [Recovered/Resolved]
  - Lip swelling [Recovering/Resolving]
  - Swelling face [Recovering/Resolving]
  - Rash [Recovered/Resolved]

NARRATIVE: CASE EVENT DATE: 20220825
